FAERS Safety Report 5716260-0 (Version None)
Quarter: 2008Q2

REPORT INFORMATION
  Report Type: 
  Country: None (occurrence: None)
  Receive Date: 20080416
  Receipt Date: 20070403
  Transmission Date: 20081010
  Serious: Yes (Hospitalization)
  Sender: FDA-Public Use
  Company Number: PHEH2007US02313

PATIENT
  Sex: Female

DRUGS (8)
  1. FORADIL [Suspect]
     Dosage: INHALATION
     Route: 055
  2. BECLOMETHASONE DIPROPIONATE [Suspect]
  3. XOPENEX [Concomitant]
  4. ALLERGY MEDICATION (NO INGREDIENTS/SUBSTANCES) [Concomitant]
  5. QVAR 40 [Concomitant]
  6. SEREVENT [Concomitant]
  7. ALLEGRA-D (FEXOFENADINE HYDROCHLORIDE, PSEUDOEPHEDRINE HYDROCHLORIDE) [Concomitant]
  8. FLONASE [Concomitant]

REACTIONS (6)
  - ASTHMA [None]
  - DYSPNOEA [None]
  - MALAISE [None]
  - MEDICATION ERROR [None]
  - NAUSEA [None]
  - VOMITING [None]
